FAERS Safety Report 4553732-9 (Version None)
Quarter: 2005Q1

REPORT INFORMATION
  Report Type: 
  Country: None (occurrence: None)
  Receive Date: 20050114
  Receipt Date: 20050114
  Transmission Date: 20050727
  Serious: Yes (Other)
  Sender: FDA-Public Use
  Company Number: None

PATIENT
  Age: 21 Year
  Sex: Female
  Weight: 54.4316 kg

DRUGS (2)
  1. FREEZE AWAY SCHERING-PLOUGH [Suspect]
     Indication: WART EXCISION
     Dosage: ORAL INHALED
     Route: 048
  2. COMPOUND W FREEZE OFF MEDTECH PRODUCTS [Suspect]

REACTIONS (1)
  - MEDICATION ERROR [None]
